FAERS Safety Report 4866875-7 (Version None)
Quarter: 2005Q4

REPORT INFORMATION
  Report Type: 
  Country: None (occurrence: None)
  Receive Date: 20051222
  Receipt Date: 20051205
  Transmission Date: 20060501
  Serious: Yes (Hospitalization, Other)
  Sender: FDA-Public Use
  Company Number: CA_050708421

PATIENT
  Age: 16 Year
  Sex: Male
  Weight: 95.5 kg

DRUGS (11)
  1. ZYPREXA [Suspect]
     Indication: DEPRESSION
     Dosage: 10 MG,
     Dates: start: 20020213, end: 20020901
  2. EFFEXOR [Concomitant]
  3. SEROQUEL [Concomitant]
  4. CELEXA [Concomitant]
  5. HUMULIN N [Concomitant]
  6. HUMALOG LISPRO (LISPRO LISPRO) [Concomitant]
  7. MONAXIN (CLARITHROMYCIN) [Concomitant]
  8. RISPERIDONE [Concomitant]
  9. MINOCYCLINE HCL [Concomitant]
  10. ADVIL [Concomitant]
  11. FLAGYL [Concomitant]

REACTIONS (16)
  - ABDOMINAL PAIN [None]
  - DEPRESSION [None]
  - DIABETES MELLITUS [None]
  - DISTURBANCE IN ATTENTION [None]
  - DRUG ADMINISTRATION ERROR [None]
  - DYSURIA [None]
  - HAEMATOCRIT DECREASED [None]
  - HAEMOGLOBIN DECREASED [None]
  - HALLUCINATION, AUDITORY [None]
  - KETOACIDOSIS [None]
  - NEUTROPHIL COUNT INCREASED [None]
  - OVERDOSE [None]
  - PANCREATITIS [None]
  - RED CELL DISTRIBUTION WIDTH INCREASED [None]
  - SCHIZOAFFECTIVE DISORDER [None]
  - WEIGHT INCREASED [None]
